FAERS Safety Report 6727855-X (Version None)
Quarter: 2010Q2

REPORT INFORMATION
  Report Type: 
  Country: None (occurrence: None)
  Receive Date: 20100517
  Receipt Date: 20100503
  Transmission Date: 20101027
  Serious: Yes (Other)
  Sender: FDA-Public Use
  Company Number: US-ELI_LILLY_AND_COMPANY-US201005001372

PATIENT
  Age: 54 Year
  Sex: Male

DRUGS (2)
  1. EFFIENT [Suspect]
     Indication: STENT PLACEMENT
     Dosage: 60 MG, UNK
     Route: 048
     Dates: start: 20100429
  2. ANGIOMAX [Concomitant]
     Dates: start: 20100429

REACTIONS (2)
  - COAGULOPATHY [None]
  - THROMBOSIS IN DEVICE [None]
